FAERS Safety Report 15845238 (Version 5)
Quarter: 2019Q2

REPORT INFORMATION
  Report Type: Report from Study
  Country: None (occurrence: CO)
  Receive Date: 20190119
  Receipt Date: 20190615
  Transmission Date: 20190711
  Serious: Yes (Other)
  Sender: FDA-Public Use
  Company Number: CO-ABBVIE-18K-036-2591385-00

PATIENT
  Age: 55 Year
  Sex: Male
  Weight: 64 kg

DRUGS (6)
  1. HUMIRA [Suspect]
     Active Substance: ADALIMUMAB
     Indication: PSORIATIC ARTHROPATHY
     Route: 058
     Dates: start: 20100317
  2. METHOTREXATE. [Concomitant]
     Active Substance: METHOTREXATE
     Indication: PRODUCT USED FOR UNKNOWN INDICATION
     Route: 048
  3. FOLIC ACID. [Concomitant]
     Active Substance: FOLIC ACID
     Indication: PRODUCT USED FOR UNKNOWN INDICATION
     Route: 048
  4. GEMFIBROZIL. [Concomitant]
     Active Substance: GEMFIBROZIL
     Indication: PRODUCT USED FOR UNKNOWN INDICATION
     Route: 048
  5. LOSARTAN. [Concomitant]
     Active Substance: LOSARTAN
     Indication: HYPERTENSION
     Route: 048
  6. HUMIRA [Suspect]
     Active Substance: ADALIMUMAB
     Indication: PSORIATIC ARTHROPATHY
     Route: 058
     Dates: end: 20181015

REACTIONS (12)
  - Malaise [Recovering/Resolving]
  - Torticollis [Recovering/Resolving]
  - Prostatic specific antigen increased [Unknown]
  - Weight decreased [Recovering/Resolving]
  - Prostatomegaly [Recovering/Resolving]
  - Post procedural discomfort [Not Recovered/Not Resolved]
  - Cystoscopy abnormal [Unknown]
  - Arthralgia [Recovering/Resolving]
  - Myalgia [Unknown]
  - Post procedural haemorrhage [Recovered/Resolved]
  - Procedural pain [Unknown]
  - Testicular pain [Not Recovered/Not Resolved]

NARRATIVE: CASE EVENT DATE: 201811
